FAERS Safety Report 15186928 (Version 2)
Quarter: 2019Q1

REPORT INFORMATION
  Report Type: Report from Study
  Country: US (occurrence: US)
  Receive Date: 20180723
  Receipt Date: 20190130
  Transmission Date: 20190417
  Serious: No
  Sender: FDA-Public Use
  Company Number: US-EXELIXIS-CABO-17011765

PATIENT
  Sex: Male

DRUGS (18)
  1. CABOMETYX [Suspect]
     Active Substance: CABOZANTINIB S-MALATE
     Indication: RENAL CANCER
     Dosage: 40 MG, QD
     Route: 048
     Dates: start: 20170923
  2. SIMVASTATIN. [Concomitant]
     Active Substance: SIMVASTATIN
  3. LYRICA [Concomitant]
     Active Substance: PREGABALIN
  4. LISINOPRIL. [Concomitant]
     Active Substance: LISINOPRIL
  5. POTASSIUM CHLORIDE. [Concomitant]
     Active Substance: POTASSIUM CHLORIDE
  6. AMOXICILLIN. [Concomitant]
     Active Substance: AMOXICILLIN
  7. CILOSTAZOL. [Concomitant]
     Active Substance: CILOSTAZOL
  8. OXYCONTIN [Concomitant]
     Active Substance: OXYCODONE HYDROCHLORIDE
  9. FLOMAX [Concomitant]
     Active Substance: TAMSULOSIN HYDROCHLORIDE
  10. PROMETHAZINE [Concomitant]
     Active Substance: PROMETHAZINE\PROMETHAZINE HYDROCHLORIDE
  11. VITAMIN D3 [Concomitant]
     Active Substance: CHOLECALCIFEROL
  12. DULOXETINE. [Concomitant]
     Active Substance: DULOXETINE
  13. ZOFRAN [Concomitant]
     Active Substance: ONDANSETRON HYDROCHLORIDE
  14. HUMULIN NOS [Concomitant]
     Active Substance: INSULIN HUMAN
  15. AMBIEN [Concomitant]
     Active Substance: ZOLPIDEM TARTRATE
  16. OXYCODONE [Concomitant]
     Active Substance: OXYCODONE
  17. OXYMORPHONE [Concomitant]
     Active Substance: OXYMORPHONE
  18. FUROSEMIDE. [Concomitant]
     Active Substance: FUROSEMIDE

REACTIONS (1)
  - Malaise [Unknown]
